FAERS Safety Report 7939247-6 (Version None)
Quarter: 2011Q4

REPORT INFORMATION
  Report Type: 
  Country: None (occurrence: None)
  Receive Date: 20111124
  Receipt Date: 20111116
  Transmission Date: 20120403
  Serious: Yes (Other)
  Sender: FDA-Public Use
  Company Number: FR-JNJFOC-20091105278

PATIENT
  Age: 59 Year
  Sex: Male
  Weight: 100 kg

DRUGS (4)
  1. INFLIXIMAB [Suspect]
     Indication: ANKYLOSING SPONDYLITIS
     Route: 042
     Dates: start: 20040601, end: 20071001
  2. PERMIXON [Concomitant]
     Indication: PROSTATIC ADENOMA
     Dosage: 1 TABLET
     Route: 065
  3. BUTAZOLIDIN [Concomitant]
     Indication: SPONDYLITIS
     Dosage: 2 - 4 TABLETS DAILY
     Route: 065
     Dates: start: 20010101, end: 20070301
  4. TAMSULOSIN HCL [Concomitant]
     Indication: PROSTATIC ADENOMA
     Dosage: 1 TABLET
     Route: 065

REACTIONS (3)
  - GENERAL PHYSICAL HEALTH DETERIORATION [None]
  - CROHN'S DISEASE [None]
  - WEIGHT DECREASED [None]
